FAERS Safety Report 8159546-5 (Version None)
Quarter: 2012Q1

REPORT INFORMATION
  Report Type: 
  Country: None (occurrence: None)
  Receive Date: 20120223
  Receipt Date: 20120214
  Transmission Date: 20120608
  Serious: Yes (Death)
  Sender: FDA-Public Use
  Company Number: JP-ROCHE-1040559

PATIENT
  Age: 74 Year
  Sex: Female

DRUGS (5)
  1. VESANOID [Suspect]
     Indication: ACUTE PROMYELOCYTIC LEUKAEMIA
     Route: 048
  2. ENOCITABINE [Concomitant]
     Indication: ACUTE PROMYELOCYTIC LEUKAEMIA
     Route: 041
  3. MERCAPTOPURINE [Concomitant]
     Indication: ACUTE PROMYELOCYTIC LEUKAEMIA
     Route: 048
  4. IDARUBICIN HYDROCHLORIDE [Concomitant]
     Indication: ACUTE PROMYELOCYTIC LEUKAEMIA
     Route: 042
  5. PREDNISOLONE SODIUM SUCCINATE INJ [Concomitant]
     Indication: ACUTE PROMYELOCYTIC LEUKAEMIA
     Route: 041

REACTIONS (1)
  - INTERSTITIAL LUNG DISEASE [None]
